FAERS Safety Report 11881991 (Version 1)
Quarter: 2015Q4

REPORT INFORMATION
  Report Type: Spontaneous
  Country: US (occurrence: US)
  Receive Date: 20151231
  Receipt Date: 20151231
  Transmission Date: 20160305
  Serious: Yes (Hospitalization, Disabling)
  Sender: FDA-Public Use
  Company Number: US-009507513-1010USA00021

PATIENT
  Age: 56 Year
  Sex: Female

DRUGS (8)
  1. ISENTRESS [Suspect]
     Active Substance: RALTEGRAVIR POTASSIUM
     Dosage: UNK
     Route: 048
     Dates: start: 20100624, end: 20100701
  2. WELLBUTRIN [Concomitant]
     Active Substance: BUPROPION HYDROCHLORIDE
     Dates: end: 20100624
  3. ISENTRESS [Suspect]
     Active Substance: RALTEGRAVIR POTASSIUM
     Indication: HIV INFECTION
     Dosage: 400 MG, BID
     Route: 048
     Dates: start: 201004, end: 201004
  4. REYATAZ [Concomitant]
     Active Substance: ATAZANAVIR SULFATE
  5. NORVIR [Concomitant]
     Active Substance: RITONAVIR
  6. ISENTRESS [Suspect]
     Active Substance: RALTEGRAVIR POTASSIUM
     Dosage: 400 MG, BID
     Route: 048
     Dates: start: 201005, end: 20100617
  7. TRUVADA [Concomitant]
     Active Substance: EMTRICITABINE\TENOFOVIR DISOPROXIL FUMARATE
  8. INTELENCE [Concomitant]
     Active Substance: ETRAVIRINE

REACTIONS (2)
  - Cerebellar ataxia [Recovered/Resolved]
  - Cerebellar ataxia [Recovered/Resolved]

NARRATIVE: CASE EVENT DATE: 201005
